FAERS Safety Report 24582528 (Version 3)
Quarter: 2025Q1

REPORT INFORMATION
  Report Type: Report from Study
  Country: ES (occurrence: ES)
  Receive Date: 20241106
  Receipt Date: 20250227
  Transmission Date: 20250408
  Serious: Yes (Hospitalization)
  Sender: JOHNSON AND JOHNSON
  Company Number: ES-JNJFOC-20240964135

PATIENT
  Age: 69 Year
  Sex: Male
  Weight: 81 kg

DRUGS (16)
  1. SIMPONI [Suspect]
     Active Substance: GOLIMUMAB
     Indication: Product used for unknown indication
     Route: 058
     Dates: start: 20180530, end: 20231129
  2. SIMPONI [Suspect]
     Active Substance: GOLIMUMAB
     Dosage: LAST APPLICATION WAS ON 29-NOV-2023
     Route: 058
     Dates: start: 20170222
  3. CLOPIDOGREL [Concomitant]
     Active Substance: CLOPIDOGREL BISULFATE
     Indication: Cerebrovascular accident
     Dates: start: 20111019
  4. PENTASA [Concomitant]
     Active Substance: MESALAMINE
     Dates: start: 1996, end: 20180515
  5. MIRTAZAPINE [Concomitant]
     Active Substance: MIRTAZAPINE
     Indication: Cognitive disorder
     Dates: start: 20101220
  6. CEFTRIAXONE [Concomitant]
     Active Substance: CEFTRIAXONE
     Indication: Escherichia pyelonephritis
     Dates: start: 20201130, end: 20201204
  7. CEFIXIME [Concomitant]
     Active Substance: CEFIXIME
     Indication: Escherichia pyelonephritis
     Dates: start: 20201205, end: 20201219
  8. POTASSIUM CITRATE [Concomitant]
     Active Substance: POTASSIUM CITRATE
     Indication: Escherichia pyelonephritis
     Dates: start: 20201209
  9. SULFAMETHOXAZOLE\TRIMETHOPRIM [Concomitant]
     Active Substance: SULFAMETHOXAZOLE\TRIMETHOPRIM
     Indication: Escherichia pyelonephritis
  10. LEVOFLOXACIN [Concomitant]
     Active Substance: LEVOFLOXACIN
     Indication: Escherichia pyelonephritis
     Dates: start: 20210129, end: 20210204
  11. MESALAMINE [Concomitant]
     Active Substance: MESALAMINE
     Dates: start: 20180516
  12. AMOXICILLIN\CLAVULANATE POTASSIUM [Concomitant]
     Active Substance: AMOXICILLIN\CLAVULANATE POTASSIUM
     Indication: Anal abscess
     Dates: start: 20230802, end: 20230808
  13. ACETAMINOPHEN\TRAMADOL [Concomitant]
     Active Substance: ACETAMINOPHEN\TRAMADOL
     Indication: Anal abscess
     Dates: start: 20230731, end: 20230808
  14. AUGMENTIN [Concomitant]
     Active Substance: AMOXICILLIN\CLAVULANATE POTASSIUM
     Indication: Cholecystitis acute
     Dates: start: 20230901, end: 20230913
  15. DEXKETOPROFEN TROMETAMOL [Concomitant]
     Active Substance: DEXKETOPROFEN TROMETAMOL
     Indication: Cholecystitis acute
     Dates: start: 20230901, end: 20230911
  16. VEDOLIZUMAB [Concomitant]
     Active Substance: VEDOLIZUMAB
     Dates: start: 20231204

REACTIONS (2)
  - Cholecystitis acute [Recovered/Resolved]
  - Infection [Unknown]

NARRATIVE: CASE EVENT DATE: 20231211
